FAERS Safety Report 19176967 (Version 3)
Quarter: 2021Q3

REPORT INFORMATION
  Report Type: Spontaneous
  Country: US (occurrence: US)
  Receive Date: 20210424
  Receipt Date: 20210727
  Transmission Date: 20211014
  Serious: No
  Sender: FDA-Public Use
  Company Number: US-BRISTOL-MYERS SQUIBB COMPANY-BMS-2021-039541

PATIENT
  Age: 53 Year
  Sex: Female

DRUGS (1)
  1. ORENCIA [Suspect]
     Active Substance: ABATACEPT
     Indication: RHEUMATOID ARTHRITIS
     Dosage: 125 MILLIGRAM, QWK
     Route: 058
     Dates: start: 20200806

REACTIONS (5)
  - Arthralgia [Unknown]
  - Milk allergy [Unknown]
  - Joint swelling [Unknown]
  - Food allergy [Unknown]
  - Condition aggravated [Unknown]

NARRATIVE: CASE EVENT DATE: 202104
